FAERS Safety Report 18627671 (Version 1)
Quarter: 2020Q4

REPORT INFORMATION
  Report Type: Spontaneous
  Country: US (occurrence: US)
  Receive Date: 20201216
  Receipt Date: 20201216
  Transmission Date: 20210114
  Serious: Yes (Other)
  Sender: FDA-Public Use
  Company Number: None

PATIENT
  Age: 19 Year
  Sex: Female
  Weight: 62.1 kg

DRUGS (6)
  1. PEPCID 20MG IV [Concomitant]
     Dates: start: 20201216
  2. TYLENOL 500MG PO [Concomitant]
     Dates: start: 20201216
  3. BENADRYL 25MG PO [Concomitant]
     Dates: start: 20201216
  4. SOLUMEDROL 250MG IV [Concomitant]
     Dates: start: 20201216
  5. TRUXIMA [Suspect]
     Active Substance: RITUXIMAB-ABBS
     Indication: MULTIPLE SCLEROSIS
     Dosage: ?          OTHER FREQUENCY:AT DAY 0 AND 14;?
     Route: 041
     Dates: start: 20201216, end: 20201216
  6. BENADRYL 25MG IVP [Concomitant]
     Dates: start: 20201216

REACTIONS (6)
  - Palpitations [None]
  - Chest discomfort [None]
  - Rash [None]
  - Flushing [None]
  - Pruritus [None]
  - Heart rate increased [None]

NARRATIVE: CASE EVENT DATE: 20201216
